FAERS Safety Report 5705467-4 (Version None)
Quarter: 2008Q2

REPORT INFORMATION
  Report Type: 
  Country: None (occurrence: None)
  Receive Date: 20080410
  Receipt Date: 20080328
  Transmission Date: 20081010
  Serious: Yes (Disabling, Other)
  Sender: FDA-Public Use
  Company Number: 100#08#2008-01723

PATIENT
  Age: 54 Year
  Sex: Female

DRUGS (6)
  1. CIPROFLOXACIN [Suspect]
     Indication: URINARY TRACT INFECTION
     Dosage: 500 MG TWICE DAILY;
  2. FLUOROQUINOLONES (FLUOROQUINOLONES) [Suspect]
     Indication: URINARY TRACT INFECTION
  3. PREDNISOLONE [Concomitant]
  4. CYCLOSPORINE [Concomitant]
  5. MYCOPHENOLATE (MYCOPHENOLATE) [Concomitant]
  6. PREDNISOLONE [Concomitant]

REACTIONS (9)
  - ARTHRALGIA [None]
  - DYSSTASIA [None]
  - EXOSTOSIS [None]
  - HYPERREFLEXIA [None]
  - MYOCLONUS [None]
  - OEDEMA [None]
  - PAIN IN EXTREMITY [None]
  - TENDONITIS [None]
  - URINARY TRACT INFECTION [None]
